FAERS Safety Report 5690780-X (Version None)
Quarter: 2008Q2

REPORT INFORMATION
  Report Type: 
  Country: None (occurrence: None)
  Receive Date: 20080401
  Receipt Date: 20080326
  Transmission Date: 20081010
  Serious: Yes (Other)
  Sender: FDA-Public Use
  Company Number: A0717600A

PATIENT
  Sex: Male

DRUGS (7)
  1. COREG CR [Suspect]
     Indication: SUPPLEMENTATION THERAPY
     Dosage: 60MG PER DAY
     Route: 048
     Dates: start: 20060101
  2. COREG [Suspect]
     Indication: SUPPLEMENTATION THERAPY
     Dosage: 6.25MG UNKNOWN
     Route: 048
  3. LISINOPRIL [Concomitant]
  4. LOVASTATIN [Concomitant]
  5. ASPIRIN [Concomitant]
  6. VITAMIN CAP [Concomitant]
  7. NEURONTIN [Concomitant]

REACTIONS (2)
  - HYPOTENSION [None]
  - SYNCOPE [None]
